FAERS Safety Report 11941313 (Version 1)
Quarter: 2016Q1

REPORT INFORMATION
  Report Type: Report from Study
  Country: US (occurrence: US)
  Receive Date: 20160122
  Receipt Date: 20160122
  Transmission Date: 20160526
  Serious: Yes (Hospitalization)
  Sender: FDA-Public Use
  Company Number: US-ABBVIE-16K-163-1541074-00

PATIENT
  Age: 51 Year
  Sex: Male

DRUGS (2)
  1. PREDNISONE. [Concomitant]
     Active Substance: PREDNISONE
     Indication: CROHN^S DISEASE
     Dosage: DOSE TAPERED
     Route: 048
  2. HUMIRA [Suspect]
     Active Substance: ADALIMUMAB
     Indication: CROHN^S DISEASE
     Route: 058
     Dates: start: 20150806

REACTIONS (5)
  - Stoma obstruction [Recovered/Resolved]
  - Stoma site inflammation [Recovered/Resolved]
  - Stoma site oedema [Recovered/Resolved]
  - Stoma site inflammation [Unknown]
  - Stoma site oedema [Unknown]

NARRATIVE: CASE EVENT DATE: 201509
